FAERS Safety Report 9779741 (Version 2)
Quarter: 2014Q1

REPORT INFORMATION
  Report Type: Spontaneous
  Country: US (occurrence: US)
  Receive Date: 20131223
  Receipt Date: 20140116
  Transmission Date: 20141002
  Serious: Yes (Death, Hospitalization)
  Sender: FDA-Public Use
  Company Number: US-GLAXOSMITHKLINE-A1054311A

PATIENT
  Age: 68 Year
  Sex: Male

DRUGS (7)
  1. VOTRIENT [Suspect]
     Indication: RENAL CELL CARCINOMA STAGE IV
     Dosage: 600MG UNKNOWN
     Route: 048
     Dates: start: 2012, end: 201303
  2. METOPROLOL [Concomitant]
  3. WARFARIN [Concomitant]
  4. ALLOPURINOL [Concomitant]
  5. MELOXICAM [Concomitant]
  6. PRAVASTATIN [Concomitant]
  7. BLOOD PRESSURE MEDICATION [Concomitant]

REACTIONS (6)
  - Cardio-respiratory arrest [Fatal]
  - Renal cell carcinoma [Fatal]
  - Cardiomyopathy [Fatal]
  - Intestinal mass [Unknown]
  - Mass excision [Unknown]
  - Surgery [Unknown]
